FAERS Safety Report 22137989 (Version 1)
Quarter: 2023Q1

REPORT INFORMATION
  Report Type: Spontaneous
  Country: US (occurrence: US)
  Receive Date: 20230325
  Receipt Date: 20230325
  Transmission Date: 20230417
  Serious: No
  Sender: FDA-Public Use
  Company Number: US-drreddys-SPO/USA/23/0161158

PATIENT
  Age: 16 Year
  Sex: Male

DRUGS (1)
  1. ZENATANE [Suspect]
     Active Substance: ISOTRETINOIN
     Indication: Product used for unknown indication
     Dosage: RMA ISSUE DATE: 25 MAY 2022 10:29:46 AM, 18 JULY 2022 01:09:33 PM, 15 SEPTEMBER 2022 04:23:50 PM, 25

REACTIONS (1)
  - Treatment noncompliance [Unknown]
